FAERS Safety Report 16752258 (Version 4)
Quarter: 2020Q1

REPORT INFORMATION
  Report Type: Spontaneous
  Country: BR (occurrence: BR)
  Receive Date: 20190828
  Receipt Date: 20200219
  Transmission Date: 20200409
  Serious: Yes (Other)
  Sender: FDA-Public Use
  Company Number: BR-GLAXOSMITHKLINE-BR2019GSK089327

PATIENT
  Age: 72 Year
  Sex: Female

DRUGS (1)
  1. NUCALA [Suspect]
     Active Substance: MEPOLIZUMAB
     Indication: ASTHMA
     Dosage: 100 MG, UNK
     Dates: start: 20190124, end: 20190926

REACTIONS (12)
  - Syncope [Unknown]
  - Cardiac pacemaker insertion [Unknown]
  - Complication associated with device [Unknown]
  - Asthenia [Unknown]
  - Product dose omission [Unknown]
  - Asthmatic crisis [Unknown]
  - Fatigue [Unknown]
  - Wheezing [Unknown]
  - Disease recurrence [Unknown]
  - Inappropriate schedule of product administration [Unknown]
  - Cough [Unknown]
  - Dyspnoea [Unknown]

NARRATIVE: CASE EVENT DATE: 20190819
